FAERS Safety Report 6802873-1 (Version None)
Quarter: 2010Q2

REPORT INFORMATION
  Report Type: 
  Country: None (occurrence: None)
  Receive Date: 20100628
  Receipt Date: 20100618
  Transmission Date: 20101027
  Serious: Yes (Hospitalization)
  Sender: FDA-Public Use
  Company Number: AU-MPIJNJ-2010-03131

PATIENT

DRUGS (20)
  1. VELCADE [Suspect]
     Indication: MULTIPLE MYELOMA
     Dosage: 1.8 MG, UNK
     Route: 042
     Dates: start: 20070709, end: 20070709
  2. ROMIDEPSIN [Suspect]
     Indication: MULTIPLE MYELOMA
     Dosage: 14 MG, UNK
     Route: 042
     Dates: start: 20070504
  3. DEXAMETHASONE [Suspect]
     Indication: MULTIPLE MYELOMA
     Dosage: 20 MG, UNK
     Route: 048
     Dates: start: 20070504, end: 20070710
  4. BONEFOS [Concomitant]
     Dosage: 1.6 G, UNK
     Route: 048
     Dates: start: 20070727
  5. NITRAZEPAM [Concomitant]
     Indication: SEDATIVE THERAPY
     Dosage: 5 MG, UNK
     Route: 048
     Dates: start: 20080828
  6. GABAPENTIN [Concomitant]
     Indication: ANALGESIC THERAPY
     Dosage: 900 MG, UNK
     Route: 048
     Dates: start: 20070803
  7. VALACYCLOVIR [Concomitant]
     Indication: PROPHYLAXIS
     Dosage: UNK
     Route: 048
     Dates: start: 20070902
  8. BACTRIM [Concomitant]
     Indication: PROPHYLAXIS
     Dosage: UNK
     Route: 048
     Dates: start: 20070502
  9. SPIRACTIN                          /00006201/ [Concomitant]
     Indication: DIURETIC THERAPY
     Dosage: UNK
     Route: 048
     Dates: start: 20070502
  10. GRANISETRON [Concomitant]
     Indication: ANTIEMETIC SUPPORTIVE CARE
     Dosage: UNK
     Route: 048
     Dates: start: 20070504
  11. FENTANYL [Concomitant]
     Indication: PAIN
     Dosage: UNK
     Dates: start: 20040101
  12. ACETAMINOPHEN [Concomitant]
     Indication: PAIN
     Dosage: UNK
     Route: 048
     Dates: start: 20070504
  13. PREDNISOLONE [Concomitant]
     Indication: PROPHYLAXIS
     Dosage: UNK
     Route: 048
     Dates: start: 20070504
  14. TEMAZEPAM [Concomitant]
     Indication: SEDATIVE THERAPY
     Dosage: UNK
     Route: 048
     Dates: start: 20070906
  15. MAGNESIUM [Concomitant]
     Indication: SUPPLEMENTATION THERAPY
     Dosage: UNK
     Route: 048
     Dates: start: 20070727
  16. PYRIDOXINE HCL [Concomitant]
     Indication: SUPPLEMENTATION THERAPY
     Dosage: UNK
     Route: 048
     Dates: start: 20070803
  17. SLOW-K [Concomitant]
     Indication: SUPPLEMENTATION THERAPY
     Dosage: UNK
     Route: 048
  18. MAGMIN [Concomitant]
     Indication: SUPPLEMENTATION THERAPY
     Dosage: UNK
     Route: 048
     Dates: start: 20070906
  19. CLOTRIMAZOLE [Concomitant]
     Indication: ANTIFUNGAL TREATMENT
     Dosage: UNK
     Route: 048
     Dates: start: 20071227
  20. MORPHINE [Concomitant]
     Indication: BACK PAIN
     Dosage: UNK
     Route: 048
     Dates: start: 20080306

REACTIONS (3)
  - CHILLS [None]
  - INFECTION [None]
  - PYREXIA [None]
